FAERS Safety Report 16655872 (Version 2)
Quarter: 2019Q3

REPORT INFORMATION
  Report Type: Spontaneous
  Country: IR (occurrence: IR)
  Receive Date: 20190801
  Receipt Date: 20190829
  Transmission Date: 20191004
  Serious: Yes (Hospitalization, Other)
  Sender: FDA-Public Use
  Company Number: PHHY2019IR173073

PATIENT
  Age: 52 Year
  Sex: Female

DRUGS (2)
  1. METHOTREXATE. [Suspect]
     Active Substance: METHOTREXATE
     Indication: RHEUMATOID ARTHRITIS
     Dosage: 50 MG, QW
     Route: 065
     Dates: start: 20150723, end: 20150929
  2. LEUCOVORIN. [Concomitant]
     Active Substance: LEUCOVORIN
     Indication: PRODUCT USED FOR UNKNOWN INDICATION
     Route: 065

REACTIONS (9)
  - Toxicity to various agents [Unknown]
  - Mucosal disorder [Unknown]
  - Mouth ulceration [Recovered/Resolved]
  - Skin lesion [Recovered/Resolved]
  - Incorrect dose administered [Unknown]
  - Abdominal pain [Unknown]
  - Gastrointestinal haemorrhage [Unknown]
  - Melaena [Recovered/Resolved]
  - Pyrexia [Recovered/Resolved]
